FAERS Safety Report 5599836-3 (Version None)
Quarter: 2008Q1

REPORT INFORMATION
  Report Type: 
  Country: None (occurrence: None)
  Receive Date: 20080123
  Receipt Date: 20080111
  Transmission Date: 20080703
  Serious: Yes (Other)
  Sender: FDA-Public Use
  Company Number: FR-BAYER-200811103GPV

PATIENT
  Age: 67 Year
  Sex: Male

DRUGS (1)
  1. SORAFENIB [Suspect]
     Indication: RENAL CELL CARCINOMA
     Route: 065

REACTIONS (2)
  - EYE HAEMORRHAGE [None]
  - RETINAL VASCULAR THROMBOSIS [None]
